FAERS Safety Report 22307721 (Version 1)
Quarter: 2023Q2

REPORT INFORMATION
  Report Type: Spontaneous
  Country: US (occurrence: None)
  Receive Date: 20230509
  Receipt Date: 20230509
  Transmission Date: 20230722
  Serious: Yes (Disabling)
  Sender: FDA-Public Use
  Company Number: None

PATIENT
  Age: 70 Year
  Sex: Female
  Weight: 64.41 kg

DRUGS (10)
  1. PRADAXA [Suspect]
     Active Substance: DABIGATRAN ETEXILATE MESYLATE
     Indication: Transient ischaemic attack
     Dosage: FREQUENCY : TWICE A DAY;?
     Route: 048
     Dates: start: 20221006, end: 20221117
  2. HYDROCORTISONE ACETATE [Concomitant]
     Active Substance: HYDROCORTISONE ACETATE
  3. HYDROCORTISONE TOPICAL CREAM [Concomitant]
  4. OMEPRAZOLE [Concomitant]
     Active Substance: OMEPRAZOLE
  5. CHLORHEXIDINE GLUCONATE [Concomitant]
     Active Substance: CHLORHEXIDINE GLUCONATE
  6. ACETAMINOPHEN [Concomitant]
     Active Substance: ACETAMINOPHEN
  7. ACETAMINOPHEN\DIPHENHYDRAMINE HYDROCHLORIDE [Concomitant]
     Active Substance: ACETAMINOPHEN\DIPHENHYDRAMINE HYDROCHLORIDE
  8. FISH OIL\OMEGA-3 FATTY ACIDS [Concomitant]
     Active Substance: FISH OIL\OMEGA-3 FATTY ACIDS
  9. VITAMIN D3 [Concomitant]
     Active Substance: CHOLECALCIFEROL
  10. PSYLLIUM SEED [Concomitant]

REACTIONS (16)
  - Dyspepsia [None]
  - Abdominal pain [None]
  - Skin irritation [None]
  - Skin burning sensation [None]
  - Raynaud^s phenomenon [None]
  - Transient ischaemic attack [None]
  - Diarrhoea [None]
  - Abdominal distension [None]
  - Bladder irritation [None]
  - Haemorrhoids [None]
  - Rash [None]
  - Rectal haemorrhage [None]
  - Therapy cessation [None]
  - Gastrointestinal pain [None]
  - Chest pain [None]
  - Internal haemorrhage [None]

NARRATIVE: CASE EVENT DATE: 20221006
